FAERS Safety Report 16706247 (Version 1)
Quarter: 2019Q3

REPORT INFORMATION
  Report Type: Spontaneous
  Country: CA (occurrence: CA)
  Receive Date: 20190815
  Receipt Date: 20190815
  Transmission Date: 20191004
  Serious: Yes (Disabling)
  Sender: FDA-Public Use
  Company Number: CA-PFIZER INC-2019344707

PATIENT
  Sex: Female
  Weight: 96 kg

DRUGS (2)
  1. HEMABATE [Suspect]
     Active Substance: CARBOPROST TROMETHAMINE
     Indication: PLACENTA ACCRETA
  2. HEMABATE [Suspect]
     Active Substance: CARBOPROST TROMETHAMINE
     Indication: POSTPARTUM HAEMORRHAGE
     Dosage: 3 DF, SINGLE
     Route: 065

REACTIONS (7)
  - Dizziness [Not Recovered/Not Resolved]
  - Impaired driving ability [Not Recovered/Not Resolved]
  - Nausea [Not Recovered/Not Resolved]
  - Migraine [Not Recovered/Not Resolved]
  - Optic nerve disorder [Not Recovered/Not Resolved]
  - Visual field defect [Not Recovered/Not Resolved]
  - Glaucoma [Not Recovered/Not Resolved]
